FAERS Safety Report 5149979-3 (Version None)
Quarter: 2006Q4

REPORT INFORMATION
  Report Type: 
  Country: None (occurrence: None)
  Receive Date: 20061108
  Receipt Date: 20061025
  Transmission Date: 20070319
  Serious: Yes (Other)
  Sender: FDA-Public Use
  Company Number: 2006131546

PATIENT
  Sex: Female
  Weight: 85 kg

DRUGS (8)
  1. NARDIL (PHENELIZINE SULFATE) [Suspect]
     Indication: DEPRESSION
     Dosage: 45 MG (INTERVAL: EVERY DAY)
  2. ATIVAN [Concomitant]
  3. ACIDOPHILUS (LACTOBACILLUS ACIDOPHILUS) [Concomitant]
  4. CHOLESTEROL (CHOLESTEROL) [Concomitant]
  5. POTASSIUM CHLORIDE [Concomitant]
  6. PREVACID [Concomitant]
  7. ALL OTHER THERAPEUTIC PRODUCTS (ALL OTHER THERAPEUTICS) [Concomitant]
  8. MULTI-VITAMINS [Concomitant]

REACTIONS (30)
  - AMNESIA [None]
  - ANTISOCIAL BEHAVIOUR [None]
  - ASOCIAL BEHAVIOUR [None]
  - BLOOD CHOLESTEROL INCREASED [None]
  - BLOOD POTASSIUM INCREASED [None]
  - BLOOD PRESSURE DECREASED [None]
  - CONVULSION [None]
  - DRUG ABUSER [None]
  - EXPOSURE TO COMMUNICABLE DISEASE [None]
  - FACIAL BONES FRACTURE [None]
  - FEAR [None]
  - FEELING ABNORMAL [None]
  - GASTROINTESTINAL DISORDER [None]
  - HALLUCINATION, VISUAL [None]
  - HEADACHE [None]
  - HUMAN BITE [None]
  - HYSTERECTOMY [None]
  - INSOMNIA [None]
  - LOSS OF CONSCIOUSNESS [None]
  - MEMORY IMPAIRMENT [None]
  - MENTAL IMPAIRMENT [None]
  - MOBILITY DECREASED [None]
  - NEOPLASM MALIGNANT [None]
  - PAIN [None]
  - PANIC ATTACK [None]
  - RENAL FAILURE [None]
  - RIB FRACTURE [None]
  - SOMNOLENCE [None]
  - SUICIDAL IDEATION [None]
  - VOMITING [None]
